FAERS Safety Report 16686559 (Version 1)
Quarter: 2019Q3

REPORT INFORMATION
  Report Type: Spontaneous
  Country: US (occurrence: US)
  Receive Date: 20190809
  Receipt Date: 20190809
  Transmission Date: 20191004
  Serious: No
  Sender: FDA-Public Use
  Company Number: US-ELI_LILLY_AND_COMPANY-US201908003908

PATIENT
  Sex: Female

DRUGS (1)
  1. TRULICITY [Suspect]
     Active Substance: DULAGLUTIDE
     Indication: DIABETES MELLITUS
     Dosage: 0.75 MG, UNKNOWN
     Route: 065
     Dates: start: 201906

REACTIONS (6)
  - Diarrhoea [Unknown]
  - Peripheral swelling [Unknown]
  - Urinary tract infection [Unknown]
  - Decreased appetite [Unknown]
  - Vein disorder [Unknown]
  - Nausea [Unknown]
